FAERS Safety Report 6695055-8 (Version None)
Quarter: 2010Q2

REPORT INFORMATION
  Report Type: 
  Country: None (occurrence: None)
  Receive Date: 20100423
  Receipt Date: 20100413
  Transmission Date: 20101027
  Serious: Yes (Other)
  Sender: FDA-Public Use
  Company Number: PHHY2010US23534

PATIENT
  Sex: Female

DRUGS (16)
  1. TEKTURNA [Suspect]
     Dosage: 150 MG, BID
  2. TEKTURNA [Suspect]
  3. TYLENOL-500 [Suspect]
  4. VITAMINS [Suspect]
  5. SPIRONOLACTONE [Concomitant]
  6. FEXOFENADINE [Concomitant]
  7. LABETALOL HCL [Concomitant]
  8. SYNTHROID [Concomitant]
  9. MAGNESIUM [Concomitant]
     Dosage: TWICE A DAY
  10. ZINC [Concomitant]
  11. NIACIN [Concomitant]
  12. B50 [Concomitant]
  13. FOLIC ACID [Concomitant]
  14. PANTOTHENIC ACID [Concomitant]
  15. IRON [Concomitant]
  16. FISH OIL [Concomitant]

REACTIONS (7)
  - ADRENAL DISORDER [None]
  - DIABETIC NEUROPATHY [None]
  - ERYTHEMA [None]
  - FEELING HOT [None]
  - INFLAMMATION [None]
  - PAIN IN EXTREMITY [None]
  - PARATHYROID DISORDER [None]
